FAERS Safety Report 5823657-7 (Version None)
Quarter: 2008Q3

REPORT INFORMATION
  Report Type: 
  Country: None (occurrence: None)
  Receive Date: 20080725
  Receipt Date: 20080714
  Transmission Date: 20090109
  Serious: Yes (Hospitalization)
  Sender: FDA-Public Use
  Company Number: US-PFIZER INC-2008058656

PATIENT
  Sex: Female
  Weight: 66 kg

DRUGS (7)
  1. METHYLPREDNISOLONE 16MG TAB [Suspect]
  2. ETANERCEPT [Suspect]
     Indication: PSORIATIC ARTHROPATHY
     Dosage: DAILY DOSE:50MG
     Route: 058
  3. TERIPARATIDE [Concomitant]
  4. DULOXETINE [Concomitant]
  5. EZETIMIBE/SIMVASTATIN [Concomitant]
  6. LEVOTHYROXINE SODIUM [Concomitant]
  7. ALPRAZOLAM [Concomitant]

REACTIONS (4)
  - CERVICAL VERTEBRAL FRACTURE [None]
  - COMPRESSION FRACTURE [None]
  - FALL [None]
  - INFECTION [None]
